FAERS Safety Report 8269161-0 (Version None)
Quarter: 2012Q2

REPORT INFORMATION
  Report Type: 
  Country: None (occurrence: None)
  Receive Date: 20120409
  Receipt Date: 20120402
  Transmission Date: 20120825
  Serious: Yes (Hospitalization)
  Sender: FDA-Public Use
  Company Number: NL-MEDIMMUNE-MEDI-0015127

PATIENT
  Sex: Male
  Weight: 8 kg

DRUGS (2)
  1. SYNAGIS [Suspect]
     Route: 030
     Dates: start: 20120302, end: 20120302
  2. SYNAGIS [Suspect]
     Indication: PREMATURE BABY
     Route: 030
     Dates: start: 20110924, end: 20120217

REACTIONS (6)
  - RESPIRATORY DISTRESS [None]
  - SEPSIS [None]
  - INTESTINAL PERFORATION [None]
  - RESPIRATORY SYNCYTIAL VIRUS TEST POSITIVE [None]
  - ILEUS [None]
  - RESPIRATORY SYNCYTIAL VIRUS INFECTION [None]
